FAERS Safety Report 5781680-5 (Version None)
Quarter: 2008Q2

REPORT INFORMATION
  Report Type: 
  Country: None (occurrence: None)
  Receive Date: 20080623
  Receipt Date: 20070523
  Transmission Date: 20081010
  Serious: No
  Sender: FDA-Public Use
  Company Number: US-ASTRAZENECA-2007UW12734

PATIENT
  Age: 45 Year
  Sex: Female
  Weight: 81.6 kg

DRUGS (2)
  1. RHINOCORT [Suspect]
     Indication: HYPERSENSITIVITY
     Route: 045
  2. INDERAL [Concomitant]

REACTIONS (2)
  - BLOOD PRESSURE INCREASED [None]
  - PALPITATIONS [None]
